FAERS Safety Report 6961409 (Version 4)
Quarter: 2012Q4

REPORT INFORMATION
  Report Type: 
  Country: JP (occurrence: JP)
  Receive Date: 20090406
  Receipt Date: 20120912
  Transmission Date: 20130627
  Serious: Yes (Hospitalization)
  Sender: FDA-Public Use
  Company Number: JP-ELI_LILLY_AND_COMPANY-JP200903003192

PATIENT
  Age: 76 Year
  Sex: Male

DRUGS (13)
  1. GEMZAR [Suspect]
     Indication: BILE DUCT CANCER STAGE IV
     Dosage: 1000 mg, other
     Route: 042
     Dates: start: 20081216, end: 20090213
  2. MAGNESIUM OXIDE [Concomitant]
     Dosage: 1 g, 3/D
     Route: 048
     Dates: start: 200605
  3. GASTER [Concomitant]
     Dosage: 20 mg, other
     Route: 048
     Dates: start: 20060504
  4. MIYA-BM [Concomitant]
     Dosage: 2 D/F, 3/D
     Route: 048
     Dates: start: 20081031
  5. POLARAMINE /00072502/ [Concomitant]
     Dosage: 2 mg, 3/D
     Route: 048
     Dates: start: 20081120, end: 20081228
  6. STARSIS [Concomitant]
     Dosage: 90 mg, 3/D
     Route: 048
     Dates: start: 20081203
  7. PREDONINE [Concomitant]
     Indication: HYPERTHERMIA
     Dosage: 30 mg, daily (1/D)
     Route: 048
     Dates: start: 20081203
  8. PREDONINE [Concomitant]
     Dosage: 15 mg, daily (1/D)
     Route: 048
     Dates: start: 200812
  9. PREDONINE [Concomitant]
     Dosage: 10 mg, daily (1/D)
     Route: 048
  10. PREDONINE [Concomitant]
     Dosage: 5 mg, daily (1/D)
     Route: 048
     Dates: end: 20090106
  11. CRAVIT [Concomitant]
     Dosage: UNK, daily (1/D)
     Route: 048
     Dates: start: 20081205, end: 20081218
  12. CRAVIT [Concomitant]
     Dosage: UNK, daily (1/D)
     Route: 048
     Dates: start: 20090109, end: 20090123
  13. URSO [Concomitant]
     Dosage: 2 D/F, 3/D
     Route: 048
     Dates: start: 20090204

REACTIONS (2)
  - Interstitial lung disease [Recovering/Resolving]
  - Cholangitis [Recovering/Resolving]
